FAERS Safety Report 18990507 (Version 1)
Quarter: 2021Q1

REPORT INFORMATION
  Report Type: Report from Study
  Country: CN (occurrence: CN)
  Receive Date: 20210310
  Receipt Date: 20210310
  Transmission Date: 20210420
  Serious: Yes (Hospitalization, Other)
  Sender: FDA-Public Use
  Company Number: CN-AUROBINDO-AUR-APL-2020-051558

PATIENT
  Age: 65 Year
  Sex: Female

DRUGS (3)
  1. CALCIUM CARBONATE/VITAMIN D3 [Concomitant]
     Active Substance: CALCIUM CARBONATE\CHOLECALCIFEROL
     Indication: OSTEOPOROSIS
     Dosage: 600 MILLIGRAM, ONCE A DAY
     Route: 065
     Dates: start: 20191219, end: 20191219
  2. EVOMELA [Suspect]
     Active Substance: MELPHALAN HYDROCHLORIDE
     Indication: SURGICAL PRECONDITIONING
     Dosage: 145.42 MILLIGRAM
     Route: 042
     Dates: start: 20200908
  3. EVOMELA [Suspect]
     Active Substance: MELPHALAN HYDROCHLORIDE
     Dosage: 145.42 MILLIGRAM
     Route: 042
     Dates: start: 20200909

REACTIONS (16)
  - Chest discomfort [Unknown]
  - Weight decreased [Unknown]
  - Diarrhoea [Not Recovered/Not Resolved]
  - Frequent bowel movements [Recovering/Resolving]
  - Nausea [Not Recovered/Not Resolved]
  - Pyrexia [Recovered/Resolved]
  - Fatigue [Recovering/Resolving]
  - Burning sensation [Unknown]
  - Obstruction [Not Recovered/Not Resolved]
  - Pain [Unknown]
  - Gastrointestinal inflammation [Recovered/Resolved]
  - Oropharyngeal pain [Recovered/Resolved]
  - Oropharyngeal discomfort [Recovered/Resolved]
  - Vomiting [Not Recovered/Not Resolved]
  - Abdominal pain [Unknown]
  - Lymphadenopathy [Unknown]

NARRATIVE: CASE EVENT DATE: 20200914
